FAERS Safety Report 7513164-8 (Version None)
Quarter: 2011Q2

REPORT INFORMATION
  Report Type: 
  Country: None (occurrence: None)
  Receive Date: 20110531
  Receipt Date: 20110518
  Transmission Date: 20111010
  Serious: Yes (Disabling)
  Sender: FDA-Public Use
  Company Number: US-MERCK-0901USA01518

PATIENT
  Age: 78 Year
  Sex: Female

DRUGS (5)
  1. FOSAMAX [Suspect]
     Indication: OSTEOPOROSIS
     Route: 048
     Dates: start: 19960701, end: 20000101
  2. FOSAMAX [Suspect]
     Indication: OSTEOPENIA
     Route: 048
     Dates: start: 19960701, end: 20000101
  3. SYNTHROID [Concomitant]
     Indication: THYROID CANCER
     Route: 065
     Dates: start: 19610101
  4. FOSAMAX [Suspect]
     Route: 048
     Dates: start: 20000101, end: 20060401
  5. FOSAMAX [Suspect]
     Route: 048
     Dates: start: 20000101, end: 20060401

REACTIONS (9)
  - JAW DISORDER [None]
  - TOOTH LOSS [None]
  - BONE LOSS [None]
  - DEVICE FAILURE [None]
  - OSTEONECROSIS OF JAW [None]
  - BONE DISORDER [None]
  - GINGIVAL INFECTION [None]
  - HYPERTENSION [None]
  - INFECTION [None]
